FAERS Safety Report 20445603 (Version 2)
Quarter: 2022Q1

REPORT INFORMATION
  Report Type: Report from Study
  Country: BR (occurrence: BR)
  Receive Date: 20220208
  Receipt Date: 20220223
  Transmission Date: 20220423
  Serious: Yes (Other)
  Sender: FDA-Public Use
  Company Number: BR-JNJFOC-20220205906

PATIENT
  Age: 44 Year
  Sex: Male
  Weight: 63 kg

DRUGS (1)
  1. REMICADE [Suspect]
     Active Substance: INFLIXIMAB
     Indication: Crohn^s disease
     Route: 042
     Dates: start: 20180324, end: 20211023

REACTIONS (4)
  - Intestinal stenosis [Unknown]
  - Intestinal fistula [Unknown]
  - Pruritus [Unknown]
  - Drug ineffective [Unknown]
